FAERS Safety Report 13567587 (Version 3)
Quarter: 2017Q3

REPORT INFORMATION
  Report Type: Report from Study
  Country: US (occurrence: US)
  Receive Date: 20170522
  Receipt Date: 20170823
  Transmission Date: 20171127
  Serious: Yes (Other)
  Sender: FDA-Public Use
  Company Number: PHEH2017US014669

PATIENT
  Sex: Male

DRUGS (1)
  1. COSENTYX [Suspect]
     Active Substance: SECUKINUMAB
     Indication: PRODUCT USED FOR UNKNOWN INDICATION
     Route: 065

REACTIONS (9)
  - Bipolar disorder [Unknown]
  - Concomitant disease progression [Unknown]
  - Scratch [Unknown]
  - Wound [Recovering/Resolving]
  - Anxiety [Unknown]
  - Upper limb fracture [Unknown]
  - Memory impairment [Unknown]
  - Dry skin [Unknown]
  - Depression [Unknown]
